FAERS Safety Report 5776397-7 (Version None)
Quarter: 2008Q2

REPORT INFORMATION
  Report Type: 
  Country: None (occurrence: None)
  Receive Date: 20080618
  Receipt Date: 20080424
  Transmission Date: 20081010
  Serious: No
  Sender: FDA-Public Use
  Company Number: US-BAYER-200821859NA

PATIENT
  Age: 45 Year
  Sex: Female
  Weight: 46 kg

DRUGS (1)
  1. YAZ [Suspect]
     Indication: CONTRACEPTION
     Route: 048
     Dates: start: 20080330, end: 20080423

REACTIONS (3)
  - ABDOMINAL DISTENSION [None]
  - BREAST TENDERNESS [None]
  - METRORRHAGIA [None]
